FAERS Safety Report 7906162-3 (Version None)
Quarter: 2011Q4

REPORT INFORMATION
  Report Type: 
  Country: None (occurrence: None)
  Receive Date: 20111110
  Receipt Date: 20111031
  Transmission Date: 20120403
  Serious: Yes (Hospitalization, Other)
  Sender: FDA-Public Use
  Company Number: US-BAYER-2011-006613

PATIENT
  Age: 28 Year
  Sex: Female
  Weight: 92.971 kg

DRUGS (4)
  1. CARAFATE [Concomitant]
     Dosage: 2 G, UNK
     Route: 048
     Dates: start: 20071209
  2. IBUPROFEN (ADVIL) [Concomitant]
     Indication: PAIN
  3. ZANTAC [Concomitant]
     Dosage: UNK
     Route: 048
     Dates: start: 20071209
  4. DROSPIRENONE AND ETHINYL ESTRADIOL [Suspect]
     Dosage: UNK
     Route: 048
     Dates: start: 20040401, end: 20070101

REACTIONS (4)
  - GALLBLADDER INJURY [None]
  - CHOLELITHIASIS [None]
  - GALLBLADDER DISORDER [None]
  - CHOLECYSTITIS CHRONIC [None]
